FAERS Safety Report 14973728 (Version 1)
Quarter: 2018Q2

REPORT INFORMATION
  Report Type: Spontaneous
  Country: US (occurrence: US)
  Receive Date: 20180514
  Receipt Date: 20180514
  Transmission Date: 20180711
  Serious: Yes (Hospitalization)
  Sender: FDA-Public Use
  Company Number: None

PATIENT
  Age: 61 Year
  Sex: Female

DRUGS (10)
  1. ORENCIA [Suspect]
     Active Substance: ABATACEPT
     Indication: RHEUMATOID ARTHRITIS
     Route: 058
     Dates: start: 20171114
  2. ASPIRIN LOW TAB 81MG EC [Concomitant]
     Dates: start: 20171211
  3. LEVOTHYROXIN TAB 100MCG [Concomitant]
     Dates: start: 20171211
  4. VITAMIN B-6 TAB 50MG [Concomitant]
     Dates: start: 20171211
  5. VITAMIN D CAP 50000 UNIT [Concomitant]
     Dates: start: 20171211
  6. VITAMIN E CAP 400 UNIT [Concomitant]
     Dates: start: 20171211
  7. METHOTREXATE TAB 2.5MG [Concomitant]
     Active Substance: METHOTREXATE
     Dates: start: 20171211
  8. VITAMIN C 500MG [Concomitant]
     Dates: start: 20171211
  9. COD LIVER OIL [Concomitant]
     Active Substance: COD LIVER OIL
     Dates: start: 20171211
  10. VITMAIN A [Concomitant]
     Dates: start: 20171211

REACTIONS (2)
  - Therapy cessation [None]
  - Abdominal discomfort [None]

NARRATIVE: CASE EVENT DATE: 20180511
